FAERS Safety Report 14085277 (Version 1)
Quarter: 2017Q4

REPORT INFORMATION
  Report Type: Spontaneous
  Country: US (occurrence: US)
  Receive Date: 20171013
  Receipt Date: 20171013
  Transmission Date: 20180321
  Serious: No
  Sender: FDA-Public Use
  Company Number: US-PFIZER INC-2016597522

PATIENT
  Sex: Male

DRUGS (1)
  1. VIAGRA [Suspect]
     Active Substance: SILDENAFIL CITRATE
     Indication: ERECTILE DYSFUNCTION
     Dosage: 100 MG, SINGLE
     Route: 048
     Dates: start: 20161222

REACTIONS (2)
  - Prescription drug used without a prescription [Unknown]
  - Painful erection [Unknown]

NARRATIVE: CASE EVENT DATE: 20161222
